FAERS Safety Report 9337659 (Version 2)
Quarter: 2013Q2

REPORT INFORMATION
  Report Type: Report from Study
  Country: US (occurrence: US)
  Receive Date: 20130607
  Receipt Date: 20130617
  Transmission Date: 20140414
  Serious: Yes (Death)
  Sender: FDA-Public Use
  Company Number: US-US-EMD SERONO, INC.-7215703

PATIENT
  Sex: Female

DRUGS (1)
  1. REBIF [Suspect]
     Indication: MULTIPLE SCLEROSIS
     Route: 058
     Dates: start: 20090301, end: 201107

REACTIONS (5)
  - Nephropathy [Fatal]
  - Pneumonia [Fatal]
  - Multiple sclerosis [Fatal]
  - Anger [Unknown]
  - Depressed mood [Unknown]
